FAERS Safety Report 25142210 (Version 1)
Quarter: 2025Q1

REPORT INFORMATION
  Report Type: Spontaneous
  Country: US (occurrence: US)
  Receive Date: 20250331
  Receipt Date: 20250331
  Transmission Date: 20250408
  Serious: No
  Sender: PFIZER
  Company Number: US-PFIZER INC-PV202500037507

PATIENT
  Age: 73 Year
  Sex: Female

DRUGS (3)
  1. TUKYSA [Interacting]
     Active Substance: TUCATINIB
     Dosage: 300 MG (2 TABLETS OF 150 MG), 2X/DAY
  2. AMLODIPINE [Interacting]
     Active Substance: AMLODIPINE BESYLATE
  3. HYDROCODONE [Interacting]
     Active Substance: HYDROCODONE

REACTIONS (1)
  - Drug interaction [Unknown]
